FAERS Safety Report 5776153-X (Version None)
Quarter: 2008Q2

REPORT INFORMATION
  Report Type: 
  Country: None (occurrence: None)
  Receive Date: 20080613
  Receipt Date: 20080606
  Transmission Date: 20081010
  Serious: Yes (Other)
  Sender: FDA-Public Use
  Company Number: 2008AL006607

PATIENT
  Sex: Female

DRUGS (3)
  1. DIAZEPAM [Suspect]
  2. LYRICA [Concomitant]
  3. WARFARIN SODIUM [Concomitant]

REACTIONS (8)
  - DRUG DEPENDENCE [None]
  - DRUG INTERACTION [None]
  - DYSARTHRIA [None]
  - FEELING ABNORMAL [None]
  - FEELING COLD [None]
  - MYALGIA [None]
  - PARALYSIS [None]
  - SOMNOLENCE [None]
